FAERS Safety Report 5596305-1 (Version None)
Quarter: 2008Q1

REPORT INFORMATION
  Report Type: 
  Country: None (occurrence: None)
  Receive Date: 20080118
  Receipt Date: 20080104
  Transmission Date: 20080703
  Serious: Yes (Hospitalization)
  Sender: FDA-Public Use
  Company Number: FR-GENENTECH-230632

PATIENT
  Age: 47 Year
  Sex: Male

DRUGS (2)
  1. RAPTIVA [Suspect]
     Indication: PSORIASIS
     Dosage: 0.7 ML, UNK
     Route: 058
     Dates: start: 20051018, end: 20060715
  2. RAPTIVA [Suspect]
     Dosage: 1 ML/KG, UNK

REACTIONS (2)
  - CROHN'S DISEASE [None]
  - PSORIATIC ARTHROPATHY [None]
